FAERS Safety Report 23995610 (Version 3)
Quarter: 2024Q3

REPORT INFORMATION
  Report Type: Spontaneous
  Country: US (occurrence: US)
  Receive Date: 20240620
  Receipt Date: 20240705
  Transmission Date: 20241017
  Serious: No
  Sender: ROCHE
  Company Number: US-ROCHE-3575748

PATIENT
  Sex: Female

DRUGS (2)
  1. COLUMVI [Suspect]
     Active Substance: GLOFITAMAB-GXBM
     Indication: B-cell lymphoma
     Route: 065
  2. COLUMVI [Suspect]
     Active Substance: GLOFITAMAB-GXBM
     Dosage: CYCLE 4
     Route: 065

REACTIONS (1)
  - Influenza [Recovered/Resolved]
